FAERS Safety Report 9148858 (Version 1)
Quarter: 2013Q1

REPORT INFORMATION
  Report Type: Spontaneous
  Country: DK (occurrence: None)
  Receive Date: 20130131
  Receipt Date: 20130131
  Transmission Date: 20140127
  Serious: Yes (Life-Threatening, Disabling)
  Sender: FDA-Public Use
  Company Number: 1579546

PATIENT
  Age: 10 Month
  Sex: Male

DRUGS (2)
  1. VANCOMYCIN HYDROCHLORIDE) [Suspect]
     Indication: URINARY TRACT INFECTION
     Dosage: INTRAVENOUS (NOT OTHERWISE SPECIFIED)
     Route: 042
  2. SULFONAMIDE [Concomitant]

REACTIONS (9)
  - Incorrect drug administration rate [None]
  - Hypersensitivity [None]
  - Local swelling [None]
  - Swelling face [None]
  - Erythema [None]
  - Cyanosis [None]
  - Eye movement disorder [None]
  - Loss of consciousness [None]
  - Feeling abnormal [None]
